FAERS Safety Report 12082769 (Version 1)
Quarter: 2016Q1

REPORT INFORMATION
  Report Type: Spontaneous
  Country: US (occurrence: None)
  Receive Date: 20160216
  Receipt Date: 20160216
  Transmission Date: 20160526
  Serious: No
  Sender: FDA-Public Use
  Company Number: None

PATIENT
  Age: 45 Year
  Sex: Male
  Weight: 106.6 kg

DRUGS (7)
  1. BYSTOLIC [Concomitant]
     Active Substance: NEBIVOLOL HYDROCHLORIDE
  2. MUCINEX [Concomitant]
     Active Substance: GUAIFENESIN
  3. AMOXICILLIN 500 MG CAPSULE SANDOZ [Suspect]
     Active Substance: AMOXICILLIN
     Indication: SINUSITIS
     Dosage: 500 MG, 1 PILL 3 TIMES A DAY, BY MOUTH WITH WATER
     Dates: start: 20160120, end: 20160126
  4. LOVAZA [Concomitant]
     Active Substance: OMEGA-3-ACID ETHYL ESTERS
  5. NIASPAN [Concomitant]
     Active Substance: NIACIN
  6. BAYER ASPIRIN [Concomitant]
     Active Substance: ASPIRIN
  7. BYSEOLIC [Concomitant]

REACTIONS (3)
  - Sleep disorder [None]
  - Heart rate increased [None]
  - Blood pressure increased [None]

NARRATIVE: CASE EVENT DATE: 20160125
